FAERS Safety Report 13196764 (Version 1)
Quarter: 2017Q1

REPORT INFORMATION
  Report Type: Spontaneous
  Country: GB (occurrence: GB)
  Receive Date: 20170208
  Receipt Date: 20170208
  Transmission Date: 20170428
  Serious: Yes (Other)
  Sender: FDA-Public Use
  Company Number: GB-DRREDDYS-USA/UKI/17/0087061

PATIENT
  Age: 52 Year
  Sex: Male

DRUGS (2)
  1. FLUOXETINE [Suspect]
     Active Substance: FLUOXETINE HYDROCHLORIDE
     Route: 065
  2. FLUOXETINE [Suspect]
     Active Substance: FLUOXETINE HYDROCHLORIDE
     Indication: SCHIZOPHRENIA
     Route: 065

REACTIONS (3)
  - Obsessive-compulsive symptom [Unknown]
  - Drug ineffective [Unknown]
  - Condition aggravated [Unknown]
